FAERS Safety Report 6030736-0 (Version None)
Quarter: 2009Q1

REPORT INFORMATION
  Report Type: 
  Country: None (occurrence: None)
  Receive Date: 20090107
  Receipt Date: 20081224
  Transmission Date: 20090719
  Serious: Yes (Hospitalization)
  Sender: FDA-Public Use
  Company Number: JP-AMGEN-US325689

PATIENT
  Sex: Male
  Weight: 38 kg

DRUGS (12)
  1. PANITUMUMAB [Suspect]
     Indication: HEAD AND NECK CANCER
     Dosage: UNKNOWN
     Route: 041
     Dates: start: 20081203, end: 20081203
  2. CISPLATIN [Suspect]
     Indication: HEAD AND NECK CANCER
     Route: 041
     Dates: start: 20081203, end: 20081203
  3. FLUOROURACIL [Suspect]
     Indication: HEAD AND NECK CANCER
     Route: 041
     Dates: start: 20081203, end: 20081206
  4. MAGLAX [Concomitant]
     Indication: CHANGE OF BOWEL HABIT
     Route: 050
  5. LAXOBERON [Concomitant]
     Indication: CHANGE OF BOWEL HABIT
     Route: 050
     Dates: start: 20081205
  6. CRAVIT [Concomitant]
     Indication: INFECTION PROPHYLAXIS
     Route: 050
     Dates: start: 20081214, end: 20081215
  7. AZULENE SODIUM SULFONATE/LEVOGLUTAMIDE [Concomitant]
     Route: 048
  8. PARACETAMOL [Concomitant]
     Route: 048
  9. LANSOPRAZOLE [Concomitant]
     Route: 048
  10. MAGLAX [Concomitant]
     Route: 048
  11. MORPHINE SULFATE [Concomitant]
     Route: 050
  12. MORPHINE HYDROCHLORIDE [Concomitant]
     Route: 050

REACTIONS (1)
  - FEBRILE NEUTROPENIA [None]
